FAERS Safety Report 17288088 (Version 1)
Quarter: 2020Q1

REPORT INFORMATION
  Report Type: Spontaneous
  Country: US (occurrence: US)
  Receive Date: 20200120
  Receipt Date: 20200120
  Transmission Date: 20200409
  Serious: Yes (Other)
  Sender: FDA-Public Use
  Company Number: US-ACTELION-A-CH2020-200444

PATIENT
  Age: 35 Year
  Sex: Female

DRUGS (5)
  1. RIOCIGUAT. [Concomitant]
     Active Substance: RIOCIGUAT
     Dosage: UNK
  2. AMBRISENTAN [Concomitant]
     Active Substance: AMBRISENTAN
     Dosage: UNK
  3. TREPROSTINIL. [Concomitant]
     Active Substance: TREPROSTINIL
     Route: 055
  4. EPOPROSTENOL SODIUM. [Suspect]
     Active Substance: EPOPROSTENOL SODIUM
     Indication: PULMONARY ARTERIAL HYPERTENSION
     Dosage: UNK
     Route: 042
  5. SILDENAFIL. [Concomitant]
     Active Substance: SILDENAFIL
     Dosage: UNK
     Dates: end: 2015

REACTIONS (9)
  - Goitre [Unknown]
  - Dysphagia [Unknown]
  - Pain [Unknown]
  - Dysphonia [Unknown]
  - Swelling [Unknown]
  - Thyroidectomy [Recovered/Resolved]
  - Optic ischaemic neuropathy [Unknown]
  - Silent thyroiditis [Unknown]
  - Dyspnoea [Unknown]
